FAERS Safety Report 19389016 (Version 1)
Quarter: 2021Q2

REPORT INFORMATION
  Report Type: Spontaneous
  Country: US (occurrence: US)
  Receive Date: 20210607
  Receipt Date: 20210607
  Transmission Date: 20210717
  Serious: Yes (Other)
  Sender: FDA-Public Use
  Company Number: None

PATIENT
  Age: 83 Year
  Weight: 76.32 kg

DRUGS (22)
  1. PROVENTIL HFA [Concomitant]
     Active Substance: ALBUTEROL SULFATE
  2. CLOBETASOL [Concomitant]
     Active Substance: CLOBETASOL
  3. PLAVIX [Concomitant]
     Active Substance: CLOPIDOGREL BISULFATE
  4. ATORVASTATIN [Concomitant]
     Active Substance: ATORVASTATIN
  5. BENAZEPRIL [Concomitant]
     Active Substance: BENAZEPRIL HYDROCHLORIDE
  6. ASPIRIN. [Concomitant]
     Active Substance: ASPIRIN
  7. EXEMASTANE [Concomitant]
     Active Substance: EXEMESTANE
  8. LANTUS [Concomitant]
     Active Substance: INSULIN GLARGINE
  9. ISOSORBIDE MONONITRATE ER [Concomitant]
     Active Substance: ISOSORBIDE MONONITRATE
  10. VITAMIN D [Concomitant]
     Active Substance: VITAMIN D NOS
  11. MAGNESIUM OXIDE. [Concomitant]
     Active Substance: MAGNESIUM OXIDE
  12. MECLIZINE [Concomitant]
     Active Substance: MECLIZINE HYDROCHLORIDE
  13. FLONASE [Concomitant]
     Active Substance: FLUTICASONE PROPIONATE
  14. LOPERAMIDE [Concomitant]
     Active Substance: LOPERAMIDE
  15. AROMASIN [Concomitant]
     Active Substance: EXEMESTANE
  16. VITAMIN B12 [Concomitant]
     Active Substance: CYANOCOBALAMIN
  17. FERROUS SULFATE. [Concomitant]
     Active Substance: FERROUS SULFATE
  18. FUROSEMIDE. [Concomitant]
     Active Substance: FUROSEMIDE
  19. HYDRALAZINE [Concomitant]
     Active Substance: HYDRALAZINE HYDROCHLORIDE
  20. IBRANCE [Suspect]
     Active Substance: PALBOCICLIB
     Indication: BREAST CANCER
     Route: 048
     Dates: start: 20210415
  21. FAMOTIDINE. [Concomitant]
     Active Substance: FAMOTIDINE
  22. PERIDEX [Concomitant]
     Active Substance: CHLORHEXIDINE GLUCONATE

REACTIONS (1)
  - Pulmonary oedema [None]

NARRATIVE: CASE EVENT DATE: 20210607
